FAERS Safety Report 7354907-6 (Version None)
Quarter: 2011Q1

REPORT INFORMATION
  Report Type: 
  Country: None (occurrence: None)
  Receive Date: 20110307
  Receipt Date: 20090824
  Transmission Date: 20110831
  Serious: Yes (Hospitalization)
  Sender: FDA-Public Use
  Company Number: GR-007862

PATIENT
  Age: 71 Year
  Sex: Male

DRUGS (3)
  1. ALLOPURINOL [Concomitant]
  2. (CHLORAMBUCIL) [Suspect]
     Dosage: ORAL
     Route: 048
  3. (OFATUMUMAB) [Suspect]
     Dosage: INJECTION INTRAVENOUS (NOT OTHERWISE SPECIFIED)
     Route: 042
     Dates: start: 20090722

REACTIONS (5)
  - DYSPNOEA [None]
  - RASH MACULO-PAPULAR [None]
  - PYREXIA [None]
  - RENAL FAILURE ACUTE [None]
  - OXYGEN SATURATION DECREASED [None]
